FAERS Safety Report 14853403 (Version 1)
Quarter: 2018Q2

REPORT INFORMATION
  Report Type: Spontaneous
  Country: US (occurrence: US)
  Receive Date: 20180419
  Receipt Date: 20180419
  Transmission Date: 20180711
  Serious: Yes (Death)
  Sender: FDA-Public Use
  Company Number: None

PATIENT
  Age: 78 Year
  Sex: Male

DRUGS (18)
  1. LANTUS [Concomitant]
     Active Substance: INSULIN GLARGINE
  2. XGEVA [Concomitant]
     Active Substance: DENOSUMAB
  3. ZOLPIDEM [Concomitant]
     Active Substance: ZOLPIDEM\ZOLPIDEM TARTRATE
  4. ZYTIGA [Suspect]
     Active Substance: ABIRATERONE ACETATE
     Indication: PROSTATE CANCER
     Route: 048
     Dates: start: 20140317, end: 20180418
  5. LORAZEPAM. [Concomitant]
     Active Substance: LORAZEPAM
  6. DIGOXIN. [Concomitant]
     Active Substance: DIGOXIN
  7. ELIGARD [Concomitant]
     Active Substance: LEUPROLIDE ACETATE
  8. JANTOVEN [Concomitant]
     Active Substance: WARFARIN SODIUM
  9. PREDNISONE. [Concomitant]
     Active Substance: PREDNISONE
  10. CARVEDILOL. [Concomitant]
     Active Substance: CARVEDILOL
  11. GNP ASPIRIN [Concomitant]
  12. GNP VITAMIN D [Concomitant]
  13. SIMVASTATIN. [Concomitant]
     Active Substance: SIMVASTATIN
  14. CENTRUM SILVER [Concomitant]
     Active Substance: MINERALS\VITAMINS
  15. KRILL OIL [Concomitant]
     Active Substance: DIETARY SUPPLEMENT
  16. GLIPIZIDE. [Concomitant]
     Active Substance: GLIPIZIDE
  17. LISINOPRIL. [Concomitant]
     Active Substance: LISINOPRIL
  18. FAMOTIDINE. [Concomitant]
     Active Substance: FAMOTIDINE

REACTIONS (1)
  - Death [None]

NARRATIVE: CASE EVENT DATE: 20180418
